FAERS Safety Report 12860948 (Version 1)
Quarter: 2016Q4

REPORT INFORMATION
  Report Type: Spontaneous
  Country: US (occurrence: US)
  Receive Date: 20161019
  Receipt Date: 20161019
  Transmission Date: 20170207
  Serious: No
  Sender: FDA-Public Use
  Company Number: US-BAYER-2016-197255

PATIENT
  Age: 46 Year
  Sex: Female
  Weight: 54.42 kg

DRUGS (2)
  1. CLARITIN-D 24 HOUR [Suspect]
     Active Substance: LORATADINE\PSEUDOEPHEDRINE SULFATE
     Indication: NASOPHARYNGITIS
  2. CLARITIN-D 24 HOUR [Suspect]
     Active Substance: LORATADINE\PSEUDOEPHEDRINE SULFATE
     Indication: HYPERSENSITIVITY
     Dosage: 1 DF, ONCE
     Route: 048
     Dates: start: 20161011, end: 20161011

REACTIONS (5)
  - Energy increased [Recovering/Resolving]
  - Poor quality sleep [Unknown]
  - Initial insomnia [Unknown]
  - Psychomotor hyperactivity [Recovering/Resolving]
  - Feeling jittery [Recovering/Resolving]

NARRATIVE: CASE EVENT DATE: 20161011
